FAERS Safety Report 23012150 (Version 3)
Quarter: 2023Q4

REPORT INFORMATION
  Report Type: Spontaneous
  Country: JP (occurrence: JP)
  Receive Date: 20230930
  Receipt Date: 20231220
  Transmission Date: 20240109
  Serious: Yes (Hospitalization, Other)
  Sender: FDA-Public Use
  Company Number: JP-CHUGAI-2023034580AA

PATIENT
  Age: 9 Decade
  Sex: Female

DRUGS (2)
  1. HEMLIBRA [Suspect]
     Active Substance: EMICIZUMAB-KXWH
     Indication: Acquired haemophilia
     Dosage: 90 MILLIGRAM, ONCE/WEEK
     Route: 058
     Dates: start: 20230713
  2. PREDONINE [Concomitant]
     Active Substance: PREDNISOLONE
     Indication: Acquired haemophilia
     Dosage: 25 MILLIGRAM

REACTIONS (2)
  - Biliary neoplasm [Unknown]
  - Haemobilia [Unknown]

NARRATIVE: CASE EVENT DATE: 20230925
